FAERS Safety Report 5341244-4 (Version None)
Quarter: 2007Q2

REPORT INFORMATION
  Report Type: 
  Country: None (occurrence: None)
  Receive Date: 20070404
  Receipt Date: 20060405
  Transmission Date: 20071010
  Serious: No
  Sender: FDA-Public Use
  Company Number: 20060069

PATIENT

DRUGS (1)
  1. DEXFERRUM [Suspect]

REACTIONS (1)
  - INJECTION SITE EXTRAVASATION [None]
